FAERS Safety Report 13149680 (Version 1)
Quarter: 2017Q1

REPORT INFORMATION
  Report Type: Spontaneous
  Country: US (occurrence: US)
  Receive Date: 20170125
  Receipt Date: 20170125
  Transmission Date: 20170428
  Serious: Yes (Other)
  Sender: FDA-Public Use
  Company Number: US-PFIZER INC-2017025292

PATIENT
  Weight: 36 kg

DRUGS (3)
  1. PROPOFOL. [Suspect]
     Active Substance: PROPOFOL
     Dosage: (1ST CASSETTE AT 160 MCG/KG/MIN)
  2. PROPOFOL. [Suspect]
     Active Substance: PROPOFOL
     Dosage: (2ND CASSETTE AT 140 MCG/KG/MIN)
  3. PROPOFOL. [Suspect]
     Active Substance: PROPOFOL
     Dosage: 60 ML, UNK

REACTIONS (2)
  - Unresponsive to stimuli [Unknown]
  - Overdose [Unknown]

NARRATIVE: CASE EVENT DATE: 20170111
